FAERS Safety Report 9971118 (Version 1)
Quarter: 2014Q1

REPORT INFORMATION
  Report Type: Report from Study
  Country: US (occurrence: US)
  Receive Date: 20140306
  Receipt Date: 20140306
  Transmission Date: 20141002
  Serious: No
  Sender: FDA-Public Use
  Company Number: US-ABBVIE-13P-163-1149844-00

PATIENT
  Sex: Male

DRUGS (5)
  1. HUMIRA [Suspect]
     Indication: PSORIATIC ARTHROPATHY
     Dates: start: 200703, end: 2010
  2. HUMIRA [Suspect]
     Dates: start: 201303
  3. HUMIRA [Suspect]
     Dates: start: 201308
  4. REMICADE [Suspect]
     Indication: PRODUCT USED FOR UNKNOWN INDICATION
     Dosage: INFUSIONS - VARIED BUT WAS AROUND EVERY 2 MONTHS
     Dates: start: 2010, end: 201303
  5. ALEVE [Concomitant]
     Indication: ARTHRALGIA
     Dosage: EVERY 8 HOURS ABOUT EVERY 10 DAYS-2WEEKS

REACTIONS (5)
  - Drug ineffective [Unknown]
  - Psoriatic arthropathy [Recovering/Resolving]
  - Drug ineffective [Unknown]
  - Unevaluable event [Not Recovered/Not Resolved]
  - Arthralgia [Unknown]
